FAERS Safety Report 9743252 (Version 1)
Quarter: 2013Q4

REPORT INFORMATION
  Report Type: Spontaneous
  Country: US (occurrence: US)
  Receive Date: 20131210
  Receipt Date: 20131210
  Transmission Date: 20140711
  Serious: No
  Sender: FDA-Public Use
  Company Number: US-GILEAD-2009-0025198

PATIENT
  Sex: Female
  Weight: 50.8 kg

DRUGS (8)
  1. LETAIRIS [Suspect]
     Indication: PULMONARY ARTERIAL HYPERTENSION
     Route: 048
     Dates: start: 20091015
  2. BONIVA [Concomitant]
  3. COUMADIN [Concomitant]
  4. PLAQUENIL [Concomitant]
  5. PROTONIX [Concomitant]
  6. LASIX [Concomitant]
  7. SYNTHROID [Concomitant]
  8. REVATIO [Concomitant]

REACTIONS (5)
  - Fatigue [Unknown]
  - Dyspnoea [Unknown]
  - Oedema peripheral [Unknown]
  - Palpitations [Unknown]
  - Unevaluable event [Unknown]
